FAERS Safety Report 8076972-3 (Version None)
Quarter: 2012Q1

REPORT INFORMATION
  Report Type: 
  Country: None (occurrence: None)
  Receive Date: 20120127
  Receipt Date: 20120123
  Transmission Date: 20120608
  Serious: Yes (Congenital Anomaly)
  Sender: FDA-Public Use
  Company Number: US-GLAXOSMITHKLINE-A0930996A

PATIENT
  Sex: Female

DRUGS (3)
  1. MULTI-VITAMINS [Concomitant]
     Route: 064
  2. ZOLOFT [Suspect]
     Indication: DEPRESSION
     Route: 064
     Dates: start: 19980101, end: 20000101
  3. PAXIL [Suspect]
     Indication: DEPRESSION
     Route: 064
     Dates: start: 19990101

REACTIONS (4)
  - FALLOT'S TETRALOGY [None]
  - FOETAL EXPOSURE DURING PREGNANCY [None]
  - ATRIAL SEPTAL DEFECT [None]
  - DUANE'S SYNDROME [None]
